FAERS Safety Report 9286580 (Version 1)
Quarter: 2012Q4

REPORT INFORMATION
  Report Type: Spontaneous
  Country: DE (occurrence: None)
  Receive Date: 20120911
  Receipt Date: 20120911
  Transmission Date: 20130627
  Serious: Yes (Other)
  Sender: FDA-Public Use
  Company Number: EU-2011-10219

PATIENT
  Sex: Male
  Weight: 43 kg

DRUGS (31)
  1. SAMSCA (TOLVAPTAN) TABLET [Suspect]
     Indication: HYPONATRAEMIA
     Route: 048
     Dates: start: 20100723, end: 20100726
  2. SAMSCA (TOLVAPTAN) TABLET [Suspect]
     Indication: SIADH
     Route: 048
     Dates: start: 20100723, end: 20100726
  3. SAMSCA (TOLVAPTAN) TABLET [Suspect]
     Indication: PULMONARY DISORDER
     Route: 048
     Dates: start: 20100723, end: 20100726
  4. SAMSCA (TOLVAPTAN) TABLET [Suspect]
     Indication: HYPONATRAEMIA
     Route: 048
     Dates: start: 20100727, end: 20100730
  5. SAMSCA (TOLVAPTAN) TABLET [Suspect]
     Indication: SIADH
     Route: 048
     Dates: start: 20100727, end: 20100730
  6. SAMSCA (TOLVAPTAN) TABLET [Suspect]
     Indication: PULMONARY DISORDER
     Route: 048
     Dates: start: 20100727, end: 20100730
  7. SAMSCA (TOLVAPTAN) TABLET [Suspect]
     Indication: HYPONATRAEMIA
     Route: 048
     Dates: start: 20100731, end: 20100809
  8. SAMSCA (TOLVAPTAN) TABLET [Suspect]
     Indication: SIADH
     Route: 048
     Dates: start: 20100731, end: 20100809
  9. SAMSCA (TOLVAPTAN) TABLET [Suspect]
     Indication: PULMONARY DISORDER
     Route: 048
     Dates: start: 20100731, end: 20100809
  10. SAMSCA (TOLVAPTAN) TABLET [Suspect]
     Indication: HYPONATRAEMIA
     Route: 048
     Dates: start: 20100811, end: 20100907
  11. SAMSCA (TOLVAPTAN) TABLET [Suspect]
     Indication: SIADH
     Route: 048
     Dates: start: 20100811, end: 20100907
  12. SAMSCA (TOLVAPTAN) TABLET [Suspect]
     Indication: PULMONARY DISORDER
     Route: 048
     Dates: start: 20100811, end: 20100907
  13. SAMSCA (TOLVAPTAN) TABLET [Suspect]
     Indication: HYPONATRAEMIA
     Route: 048
     Dates: start: 20100908, end: 20110605
  14. SAMSCA (TOLVAPTAN) TABLET [Suspect]
     Indication: SIADH
     Route: 048
     Dates: start: 20100908, end: 20110605
  15. SAMSCA (TOLVAPTAN) TABLET [Suspect]
     Indication: PULMONARY DISORDER
     Route: 048
     Dates: start: 20100908, end: 20110605
  16. SAMSCA (TOLVAPTAN) TABLET [Suspect]
     Indication: HYPONATRAEMIA
     Route: 048
     Dates: start: 20110606, end: 20120207
  17. SAMSCA (TOLVAPTAN) TABLET [Suspect]
     Indication: SIADH
     Route: 048
     Dates: start: 20110606, end: 20120207
  18. SAMSCA (TOLVAPTAN) TABLET [Suspect]
     Indication: PULMONARY DISORDER
     Route: 048
     Dates: start: 20110606, end: 20120207
  19. SAMSCA (TOLVAPTAN) TABLET [Suspect]
     Indication: HYPONATRAEMIA
     Route: 048
     Dates: start: 20120208
  20. SAMSCA (TOLVAPTAN) TABLET [Suspect]
     Indication: SIADH
     Route: 048
     Dates: start: 20120208
  21. SAMSCA (TOLVAPTAN) TABLET [Suspect]
     Indication: PULMONARY DISORDER
     Route: 048
     Dates: start: 20120208
  22. BISOPROLOL (BISOPROLOL) [Concomitant]
  23. DIGITOXIN (DIGITOXIN) [Concomitant]
  24. KREON (PANCREAS POWDER) [Concomitant]
  25. PHENOPROCOUMON (PHENPROCOUMON) [Concomitant]
  26. PREDNISOLONE (PREDNISOLONE) [Concomitant]
  27. TROSPIUM CHLORIDE (TROSPIUM CHLORIDE) [Concomitant]
  28. COLECALCIFEROL (COLECALCIFEROL) [Concomitant]
  29. ROCEPHIN (CEFTRIAXONE SODIUM) [Concomitant]
  30. TAVOR (SIMVASTATIN) [Concomitant]
  31. SALINE (SALINE) [Concomitant]

REACTIONS (2)
  - Cerebral infarction [None]
  - Wrong technique in drug usage process [None]
